FAERS Safety Report 7098402-0 (Version None)
Quarter: 2010Q4

REPORT INFORMATION
  Report Type: 
  Country: None (occurrence: None)
  Receive Date: 20101112
  Receipt Date: 20101102
  Transmission Date: 20110411
  Serious: Yes (Other)
  Sender: FDA-Public Use
  Company Number: ES-SANOFI-AVENTIS-2010SA066952

PATIENT
  Age: 55 Year
  Sex: Female

DRUGS (3)
  1. ZOLPIDEM [Suspect]
     Route: 048
  2. FLUOXETINE [Concomitant]
     Indication: AFFECTIVE DISORDER
     Route: 065
  3. ALPRAZOLAM [Concomitant]
     Indication: AFFECTIVE DISORDER
     Route: 065

REACTIONS (7)
  - ABNORMAL SLEEP-RELATED EVENT [None]
  - AMNESIA [None]
  - INCORRECT DRUG ADMINISTRATION DURATION [None]
  - OBESITY [None]
  - SLEEP TALKING [None]
  - SLEEP-RELATED EATING DISORDER [None]
  - SOMNAMBULISM [None]
